FAERS Safety Report 6765051-0 (Version None)
Quarter: 2010Q2

REPORT INFORMATION
  Report Type: 
  Country: None (occurrence: None)
  Receive Date: 20100609
  Receipt Date: 20100609
  Transmission Date: 20101027
  Serious: Yes (Disabling, Other)
  Sender: FDA-Public Use
  Company Number: None

PATIENT
  Age: 40 Year
  Sex: Female
  Weight: 72.5755 kg

DRUGS (1)
  1. BUDEPRION XL 150 MG AND 300 MG PILLS TEVA [Suspect]
     Indication: DEPRESSION
     Dosage: 450 MG DAILY PO
     Route: 048
     Dates: start: 20010207, end: 20100514

REACTIONS (7)
  - ALOPECIA [None]
  - DRUG INEFFECTIVE [None]
  - FATIGUE [None]
  - HEADACHE [None]
  - NAUSEA [None]
  - PRODUCT SUBSTITUTION ISSUE [None]
  - SUICIDAL IDEATION [None]
